FAERS Safety Report 6964467-7 (Version None)
Quarter: 2010Q3

REPORT INFORMATION
  Report Type: 
  Country: None (occurrence: None)
  Receive Date: 20100903
  Receipt Date: 20100824
  Transmission Date: 20110219
  Serious: Yes (Hospitalization, Other)
  Sender: FDA-Public Use
  Company Number: US-PFIZER INC-2010029634

PATIENT
  Sex: Female
  Weight: 43.537 kg

DRUGS (4)
  1. XANAX [Interacting]
     Indication: INSOMNIA
     Dosage: 0.5 MG, DAILY
  2. OVULEN-21 [Interacting]
     Indication: CONTRACEPTION
     Dosage: UNK
     Dates: start: 19850101, end: 20090805
  3. OXYCODONE [Suspect]
     Dosage: 10 MG, 2X/DAY
  4. LO/OVRAL [Suspect]

REACTIONS (43)
  - ACTIVITIES OF DAILY LIVING IMPAIRED [None]
  - AGGRESSION [None]
  - ANXIETY [None]
  - APHAGIA [None]
  - ARTHROPATHY [None]
  - AUTOIMMUNE THYROIDITIS [None]
  - BEDRIDDEN [None]
  - BLADDER DISORDER [None]
  - BLINDNESS [None]
  - BONE DENSITY DECREASED [None]
  - BRAIN INJURY [None]
  - BURNING MOUTH SYNDROME [None]
  - CONVULSION [None]
  - DIARRHOEA [None]
  - DISTURBANCE IN ATTENTION [None]
  - DRUG DEPENDENCE [None]
  - DRUG INEFFECTIVE [None]
  - DRUG PRESCRIBING ERROR [None]
  - DRY MOUTH [None]
  - DYSPHONIA [None]
  - EYE DISCHARGE [None]
  - FEELING ABNORMAL [None]
  - FLUSHING [None]
  - GASTROOESOPHAGEAL REFLUX DISEASE [None]
  - HEPATIC NEOPLASM [None]
  - HYPERSENSITIVITY [None]
  - IMPAIRED DRIVING ABILITY [None]
  - INHIBITORY DRUG INTERACTION [None]
  - JOINT DISLOCATION [None]
  - LOWER LIMB FRACTURE [None]
  - MALABSORPTION [None]
  - MUSCLE DISORDER [None]
  - OVARIAN DISORDER [None]
  - PSYCHOTIC DISORDER [None]
  - SKIN ATROPHY [None]
  - SLEEP DISORDER [None]
  - SPINAL DISORDER [None]
  - SUICIDAL IDEATION [None]
  - TOOTH DISORDER [None]
  - VITAMIN B12 INCREASED [None]
  - VOMITING [None]
  - WEIGHT DECREASED [None]
  - WITHDRAWAL SYNDROME [None]
